FAERS Safety Report 8241684-X (Version None)
Quarter: 2012Q1

REPORT INFORMATION
  Report Type: 
  Country: None (occurrence: None)
  Receive Date: 20120328
  Receipt Date: 20120323
  Transmission Date: 20120608
  Serious: Yes (Hospitalization)
  Sender: FDA-Public Use
  Company Number: US-AMGEN-KDL421358

PATIENT
  Age: 60 Year
  Sex: Female

DRUGS (3)
  1. ENBREL [Suspect]
     Indication: CROHN'S DISEASE
  2. ENBREL [Suspect]
     Indication: ANKYLOSING SPONDYLITIS
     Dosage: 50 MG, QWK
     Route: 058
     Dates: start: 20060906, end: 20120104
  3. HUMIRA [Concomitant]
     Dosage: UNK
     Dates: start: 20080101

REACTIONS (12)
  - CYSTITIS [None]
  - ENTEROSTOMY [None]
  - PERINEAL FISTULA [None]
  - ABSCESS DRAINAGE [None]
  - CROHN'S DISEASE [None]
  - PERINEAL INFECTION [None]
  - PERINEAL ABSCESS [None]
  - DRY THROAT [None]
  - INFECTION [None]
  - GAIT DISTURBANCE [None]
  - RED BLOOD CELL SEDIMENTATION RATE INCREASED [None]
  - SINUSITIS [None]
